FAERS Safety Report 13715897 (Version 6)
Quarter: 2017Q4

REPORT INFORMATION
  Report Type: Report from Study
  Country: US (occurrence: US)
  Receive Date: 20170705
  Receipt Date: 20171028
  Transmission Date: 20180320
  Serious: Yes (Life-Threatening, Hospitalization, Other)
  Sender: FDA-Public Use
  Company Number: US-AMGEN-USASL2017098877

PATIENT
  Age: 55 Year
  Sex: Female

DRUGS (3)
  1. REPATHA [Suspect]
     Active Substance: EVOLOCUMAB
     Dosage: 140 MG, Q2WK
     Route: 065
     Dates: start: 2017
  2. REPATHA [Suspect]
     Active Substance: EVOLOCUMAB
     Indication: HYPERCHOLESTEROLAEMIA
     Dosage: 140 MG, Q2WK
     Route: 065
     Dates: start: 201611
  3. REPATHA [Suspect]
     Active Substance: EVOLOCUMAB
     Dosage: 420 MG, QMO
     Route: 065
     Dates: start: 2017

REACTIONS (15)
  - Blood potassium decreased [Unknown]
  - Abdominal mass [Unknown]
  - Abdominal pain [Unknown]
  - Injection site pain [Unknown]
  - Pain in extremity [Unknown]
  - Impaired driving ability [Unknown]
  - Hyperhidrosis [Unknown]
  - Decreased activity [Unknown]
  - Blood triglycerides increased [Unknown]
  - Laboratory test abnormal [Unknown]
  - Feeling cold [Unknown]
  - Alopecia [Unknown]
  - Cholangitis [Unknown]
  - Bile duct obstruction [Unknown]
  - Sepsis [Unknown]

NARRATIVE: CASE EVENT DATE: 2017
